FAERS Safety Report 6671251-0 (Version None)
Quarter: 2010Q2

REPORT INFORMATION
  Report Type: 
  Country: None (occurrence: None)
  Receive Date: 20100407
  Receipt Date: 20100325
  Transmission Date: 20101027
  Serious: No
  Sender: FDA-Public Use
  Company Number: US-B.I. PHARMACEUTICALS,INC./RIDGEFIELD-2010-BP-02663BP

PATIENT
  Age: 83 Year
  Sex: Female

DRUGS (3)
  1. SPIRIVA [Suspect]
     Dates: end: 20100216
  2. FLOVENT [Concomitant]
  3. PROVENTIL-HFA [Concomitant]

REACTIONS (2)
  - OPEN ANGLE GLAUCOMA [None]
  - VISION BLURRED [None]
